FAERS Safety Report 8967871 (Version 3)
Quarter: 2013Q2

REPORT INFORMATION
  Report Type: Spontaneous
  Country: US (occurrence: US)
  Receive Date: 20121218
  Receipt Date: 20130401
  Transmission Date: 20140414
  Serious: Yes (Death, Other)
  Sender: FDA-Public Use
  Company Number: US-PFIZER INC-2012310684

PATIENT
  Age: 75 Year
  Sex: Male
  Weight: 112 kg

DRUGS (4)
  1. SERTRALINE HCL [Suspect]
     Indication: DEPRESSION
     Dosage: UNK, 1X/DAY
     Route: 048
     Dates: end: 2012
  2. GABAPENTIN [Suspect]
     Indication: DIABETIC NEUROPATHY
     Dosage: UNK, 1X/DAY
     Dates: end: 2012
  3. ATENOLOL [Concomitant]
     Indication: HYPERTENSION
     Dosage: 10 MG, UNK
  4. RENAGEL [Concomitant]
     Indication: DIALYSIS
     Dosage: UNK

REACTIONS (8)
  - Death [Fatal]
  - Dementia [Unknown]
  - Cerebrovascular insufficiency [Unknown]
  - Blindness [Unknown]
  - Fumbling [Not Recovered/Not Resolved]
  - Somnolence [Not Recovered/Not Resolved]
  - Confusional state [Unknown]
  - Asthenia [Unknown]
